FAERS Safety Report 7793227-2 (Version None)
Quarter: 2011Q4

REPORT INFORMATION
  Report Type: 
  Country: None (occurrence: None)
  Receive Date: 20111003
  Receipt Date: 20110920
  Transmission Date: 20120403
  Serious: Yes (Other)
  Sender: FDA-Public Use
  Company Number: US-ELI_LILLY_AND_COMPANY-US201109006588

PATIENT
  Sex: Female

DRUGS (7)
  1. HUMALOG MIX 75/25 [Suspect]
     Dosage: 25 U, EACH EVENING
  2. LOSARTAN POTASSIUM [Concomitant]
  3. HUMALOG MIX 75/25 [Suspect]
     Indication: TYPE 2 DIABETES MELLITUS
     Dosage: 17 U, EACH MORNING
  4. DIOVAN [Concomitant]
  5. HUMALOG MIX 75/25 [Suspect]
     Dosage: UNK
  6. LANTUS [Concomitant]
  7. CARVEDILOL [Concomitant]

REACTIONS (10)
  - SURGERY [None]
  - DRUG INTERACTION [None]
  - BLOOD GLUCOSE INCREASED [None]
  - CHILLS [None]
  - STRESS [None]
  - HEART RATE DECREASED [None]
  - FATIGUE [None]
  - TREMOR [None]
  - BLOOD GLUCOSE DECREASED [None]
  - FEELING COLD [None]
